FAERS Safety Report 9375814 (Version 1)
Quarter: 2013Q2

REPORT INFORMATION
  Report Type: Other
  Country: GB (occurrence: GB)
  Receive Date: 20130628
  Receipt Date: 20130628
  Transmission Date: 20140414
  Serious: Yes (Death)
  Sender: FDA-Public Use
  Company Number: GB-WATSON-2013-11716

PATIENT
  Age: 46 Year
  Sex: Male
  Weight: 112 kg

DRUGS (5)
  1. SERTRALINE HYDROCHLORIDE (UNKNOWN) [Suspect]
     Indication: DEPRESSION
     Dosage: 200 MG, DAILY
     Route: 048
     Dates: start: 2000
  2. ZAPONEX [Suspect]
     Indication: SCHIZOPHRENIA, PARANOID TYPE
     Dosage: 300 MG, BID
     Route: 048
     Dates: start: 20090626, end: 20121116
  3. VALPROIC ACID                      /00228502/ [Concomitant]
     Indication: CONVULSION
     Dosage: 600 MG, DAILY
     Route: 065
     Dates: start: 2000
  4. AMISULPRIDE [Concomitant]
     Indication: PRODUCT USED FOR UNKNOWN INDICATION
     Dosage: 800 MG, DAILY
     Route: 065
  5. SIMVASTATIN [Concomitant]
     Indication: HYPERCHOLESTEROLAEMIA
     Dosage: 40 MG, DAILY
     Route: 065
     Dates: start: 2005

REACTIONS (6)
  - Drowning [Fatal]
  - Completed suicide [Fatal]
  - Arteriosclerosis coronary artery [Fatal]
  - Emphysema [Fatal]
  - Intentional overdose [Fatal]
  - Overdose [Fatal]
